FAERS Safety Report 20923618 (Version 1)
Quarter: 2022Q2

REPORT INFORMATION
  Report Type: Spontaneous
  Country: US (occurrence: None)
  Receive Date: 20220606
  Receipt Date: 20220606
  Transmission Date: 20220720
  Serious: Yes (Hospitalization)
  Sender: FDA-Public Use
  Company Number: None

PATIENT
  Age: 80 Year
  Sex: Male

DRUGS (14)
  1. ESBRIET [Suspect]
     Active Substance: PIRFENIDONE
     Indication: Idiopathic pulmonary fibrosis
     Dosage: TAKE 3 CAPSULES BY MOUTH THREE TIMES DAILY WITH MEALS
     Route: 048
     Dates: start: 20200115
  2. CARDURA [Concomitant]
  3. CENTRUM TAB SILVER [Concomitant]
  4. CLONAZEPAM TAB [Concomitant]
  5. ELIQUIS [Concomitant]
  6. EPLERENONE [Concomitant]
  7. FAMOTIDINE [Concomitant]
     Active Substance: FAMOTIDINE
  8. GLIMEPIRIDE [Concomitant]
     Active Substance: GLIMEPIRIDE
  9. LEVOTHYROXINE [Concomitant]
     Active Substance: LEVOTHYROXINE
  10. HYDROCHLOROTHIAZIDE\LOSARTAN POTASSIUM [Concomitant]
     Active Substance: HYDROCHLOROTHIAZIDE\LOSARTAN POTASSIUM
  11. MELOXICAM [Concomitant]
     Active Substance: MELOXICAM
  12. METOPROL TAR TAB [Concomitant]
  13. PAXIL [Concomitant]
  14. PIOGLITAZONE [Concomitant]

REACTIONS (2)
  - Hospitalisation [None]
  - Therapy interrupted [None]

NARRATIVE: CASE EVENT DATE: 20220527
